FAERS Safety Report 24686690 (Version 1)
Quarter: 2024Q4

REPORT INFORMATION
  Report Type: Spontaneous
  Country: US (occurrence: None)
  Receive Date: 20241129
  Receipt Date: 20241129
  Transmission Date: 20250115
  Serious: Yes (Other)
  Sender: Public
  Company Number: None

PATIENT
  Age: 24 Year
  Sex: Female
  Weight: 81 kg

DRUGS (1)
  1. OPZELURA [Suspect]
     Active Substance: RUXOLITINIB PHOSPHATE
     Indication: Dermatitis contact
     Dosage: FREQUENCY : TWICE A DAY;?
     Route: 061

REACTIONS (2)
  - Autoimmune disorder [None]
  - Seborrhoeic dermatitis [None]

NARRATIVE: CASE EVENT DATE: 20240423
